FAERS Safety Report 6177450-9 (Version None)
Quarter: 2009Q2

REPORT INFORMATION
  Report Type: 
  Country: None (occurrence: None)
  Receive Date: 20090501
  Receipt Date: 20090501
  Transmission Date: 20091009
  Serious: Yes (Life-Threatening)
  Sender: FDA-Public Use
  Company Number: None

PATIENT
  Age: 59 Year
  Sex: Female
  Weight: 56 kg

DRUGS (7)
  1. LORAZEPAM [Suspect]
     Indication: ANXIETY
     Dosage: 0.5MG IV X 1
     Route: 042
     Dates: start: 20090215
  2. LORAZEPAM [Suspect]
     Indication: NAUSEA
     Dosage: 0.5MG IV X 1
     Route: 042
     Dates: start: 20090215
  3. HYDROMORPHONE HCL [Suspect]
     Indication: PAIN
     Dosage: 0.2/0.1/10
     Dates: start: 20090204, end: 20090215
  4. HEPARIN [Concomitant]
  5. RANITIDINE [Concomitant]
  6. PHENERGHAN [Concomitant]
  7. ZOFRAN [Concomitant]

REACTIONS (6)
  - ANXIETY [None]
  - NAUSEA [None]
  - PAIN [None]
  - RESPIRATORY ARREST [None]
  - SINUS TACHYCARDIA [None]
  - UNRESPONSIVE TO STIMULI [None]
